FAERS Safety Report 5922617-5 (Version None)
Quarter: 2008Q4

REPORT INFORMATION
  Report Type: 
  Country: None (occurrence: None)
  Receive Date: 20081017
  Receipt Date: 20081013
  Transmission Date: 20090506
  Serious: Yes (Hospitalization)
  Sender: FDA-Public Use
  Company Number: PHEH2008US09158

PATIENT
  Sex: Male

DRUGS (2)
  1. SANDOSTATIN [Suspect]
     Indication: DIARRHOEA
  2. NOVOLOG [Interacting]

REACTIONS (5)
  - BLOOD GLUCOSE INCREASED [None]
  - DRUG INTERACTION [None]
  - GLYCOSYLATED HAEMOGLOBIN INCREASED [None]
  - KETOACIDOSIS [None]
  - LOSS OF CONSCIOUSNESS [None]
